FAERS Safety Report 7644873-8 (Version None)
Quarter: 2011Q3

REPORT INFORMATION
  Report Type: 
  Country: None (occurrence: None)
  Receive Date: 20110729
  Receipt Date: 20110719
  Transmission Date: 20111222
  Serious: Yes (Disabling)
  Sender: FDA-Public Use
  Company Number: UG-ABBOTT-11P-165-0840561-00

PATIENT
  Age: 42 Year
  Sex: Female

DRUGS (4)
  1. CO-TRIMAZOLE [Concomitant]
     Indication: PRODUCT USED FOR UNKNOWN INDICATION
     Dates: start: 20040329
  2. TENOFOVIR DISOPROXIL FUMARATE [Concomitant]
     Indication: HIV INFECTION
     Dates: start: 20100702
  3. LAMIVUDINE [Concomitant]
     Indication: HIV INFECTION
     Dates: start: 20100702
  4. LOPINAVIR/RITONAVIR [Suspect]
     Indication: HIV INFECTION
     Route: 048
     Dates: start: 20100702

REACTIONS (4)
  - PAST-POINTING [None]
  - INTENTION TREMOR [None]
  - GAIT DISTURBANCE [None]
  - HYPERREFLEXIA [None]
